FAERS Safety Report 20567193 (Version 1)
Quarter: 2022Q1

REPORT INFORMATION
  Report Type: Spontaneous
  Country: ES (occurrence: ES)
  Receive Date: 20220308
  Receipt Date: 20220308
  Transmission Date: 20220424
  Serious: Yes (Death, Hospitalization)
  Sender: FDA-Public Use
  Company Number: None

PATIENT
  Age: 66 Year
  Sex: Female
  Weight: 60 kg

DRUGS (5)
  1. ALLOPURINOL [Suspect]
     Active Substance: ALLOPURINOL
     Indication: Hyperuricaemia
     Dosage: 200 MILLIGRAM, QD
     Route: 048
     Dates: start: 20210831, end: 20210930
  2. CEFTRIAXONE [Suspect]
     Active Substance: CEFTRIAXONE
     Indication: Urinary tract infection
     Dosage: UNK
     Route: 042
     Dates: start: 20210927, end: 20210930
  3. ENOXAPARIN SODIUM [Concomitant]
     Active Substance: ENOXAPARIN SODIUM
     Indication: Thrombophlebitis
     Dosage: 60 MILLIGRAM, QD (60MG, ONCE A DAY)
     Route: 058
     Dates: start: 20210823, end: 20210929
  4. OMEPRAZOLE [Concomitant]
     Active Substance: OMEPRAZOLE
     Dosage: 20 MILLIGRAM, BID (20 MG, TWICE A DAY)
     Dates: start: 20210914, end: 20210927
  5. Metoclopramida kern pharma [Concomitant]
     Indication: Vomiting
     Dosage: UNK (UNKNOWN)
     Route: 048
     Dates: start: 20210914, end: 20210927

REACTIONS (2)
  - Toxic epidermal necrolysis [Fatal]
  - Stevens-Johnson syndrome [Recovering/Resolving]

NARRATIVE: CASE EVENT DATE: 20210930
